FAERS Safety Report 5626980-4 (Version None)
Quarter: 2008Q1

REPORT INFORMATION
  Report Type: 
  Country: None (occurrence: None)
  Receive Date: 20080212
  Receipt Date: 20080128
  Transmission Date: 20080703
  Serious: Yes (Other)
  Sender: FDA-Public Use
  Company Number: B0506561A

PATIENT
  Sex: Female

DRUGS (8)
  1. ONDANSETRON HYDROCHLORIDE [Suspect]
     Indication: VOMITING
     Dosage: 2 MG/ THREE TIMES PER DAY / INTRA
  2. CYTARABINE [Concomitant]
  3. VINCRISTINE [Concomitant]
  4. DEXAMETHASONE TAB [Concomitant]
  5. COLASPASE [Concomitant]
  6. METHOTREXATE [Concomitant]
  7. MERCAPTOPURINE [Concomitant]
  8. CYCLOPHOSPHAMIDE [Concomitant]

REACTIONS (3)
  - ABSCESS [None]
  - BIOPSY SITE UNSPECIFIED NORMAL [None]
  - HYPOKALAEMIA [None]
